FAERS Safety Report 15576834 (Version 3)
Quarter: 2018Q4

REPORT INFORMATION
  Report Type: Report from Study
  Country: US (occurrence: US)
  Receive Date: 20181101
  Receipt Date: 20181207
  Transmission Date: 20190205
  Serious: Yes (Hospitalization)
  Sender: FDA-Public Use
  Company Number: US-BIOGEN-2018BI00650564

PATIENT
  Sex: Male

DRUGS (1)
  1. AVONEX [Suspect]
     Active Substance: INTERFERON BETA-1A
     Indication: MULTIPLE SCLEROSIS
     Route: 030
     Dates: start: 20090319

REACTIONS (11)
  - Drug hypersensitivity [Not Recovered/Not Resolved]
  - Gastric disorder [Not Recovered/Not Resolved]
  - Back pain [Not Recovered/Not Resolved]
  - Fall [Recovered/Resolved]
  - Pharyngeal disorder [Not Recovered/Not Resolved]
  - Gait disturbance [Not Recovered/Not Resolved]
  - Agraphia [Not Recovered/Not Resolved]
  - Nerve root compression [Not Recovered/Not Resolved]
  - Bradykinesia [Not Recovered/Not Resolved]
  - Depression [Not Recovered/Not Resolved]
  - Gastrointestinal disorder [Not Recovered/Not Resolved]
